FAERS Safety Report 20712454 (Version 2)
Quarter: 2022Q2

REPORT INFORMATION
  Report Type: Spontaneous
  Country: FR (occurrence: None)
  Receive Date: 20220415
  Receipt Date: 20220601
  Transmission Date: 20220721
  Serious: Yes (Disabling)
  Sender: FDA-Public Use
  Company Number: FR-ROCHE-3069163

PATIENT
  Age: 56 Year
  Weight: 104 kg

DRUGS (2)
  1. AVASTIN [Suspect]
     Active Substance: BEVACIZUMAB
     Indication: Lung neoplasm malignant
     Route: 042
     Dates: start: 20211001
  2. VIMPAT [Concomitant]
     Active Substance: LACOSAMIDE

REACTIONS (2)
  - Pelvic pain [Unknown]
  - Testicular swelling [Unknown]

NARRATIVE: CASE EVENT DATE: 20211001
